FAERS Safety Report 17342213 (Version 2)
Quarter: 2020Q1

REPORT INFORMATION
  Report Type: Spontaneous
  Country: US (occurrence: US)
  Receive Date: 20200129
  Receipt Date: 20200306
  Transmission Date: 20200409
  Serious: No
  Sender: FDA-Public Use
  Company Number: US-ASTRAZENECA-2020SE00670

PATIENT
  Age: 29365 Day
  Sex: Female
  Weight: 117.9 kg

DRUGS (2)
  1. LOKELMA [Suspect]
     Active Substance: SODIUM ZIRCONIUM CYCLOSILICATE
     Indication: HYPERKALAEMIA
     Route: 048
     Dates: start: 20191222, end: 20191224
  2. ADVIL [Concomitant]
     Active Substance: IBUPROFEN
     Indication: PAIN

REACTIONS (12)
  - Insomnia [Recovered/Resolved]
  - Cough [Unknown]
  - Burning sensation [Recovered/Resolved]
  - Urine output increased [Unknown]
  - Peripheral swelling [Unknown]
  - Gait disturbance [Unknown]
  - Bronchial secretion retention [Unknown]
  - Drug hypersensitivity [Unknown]
  - Urine output decreased [Recovered/Resolved]
  - Joint swelling [Recovering/Resolving]
  - Pain [Recovering/Resolving]
  - Product dose omission [Unknown]

NARRATIVE: CASE EVENT DATE: 201912
